FAERS Safety Report 10029620 (Version 1)
Quarter: 2014Q1

REPORT INFORMATION
  Report Type: Spontaneous
  Country: GB (occurrence: GB)
  Receive Date: 20140322
  Receipt Date: 20140322
  Transmission Date: 20141002
  Serious: Yes (Other)
  Sender: FDA-Public Use
  Company Number: GB-ACCORD-022638

PATIENT
  Age: 63 Year
  Sex: Male
  Weight: 97 kg

DRUGS (4)
  1. SIMVASTATIN [Suspect]
     Indication: HYPERCHOLESTEROLAEMIA
     Dosage: REDUCED TO 20MG
     Route: 048
     Dates: start: 20030101, end: 20130808
  2. TAMSULOSIN [Concomitant]
  3. AMLODIPINE [Concomitant]
  4. CANDESARTAN [Concomitant]

REACTIONS (6)
  - Local swelling [Recovered/Resolved]
  - Arthralgia [Recovered/Resolved]
  - Joint swelling [Recovered/Resolved]
  - Arthritis [Recovered/Resolved]
  - Medication error [Unknown]
  - Pain in extremity [Recovered/Resolved]
